FAERS Safety Report 23670380 (Version 1)
Quarter: 2024Q1

REPORT INFORMATION
  Report Type: Spontaneous
  Country: US (occurrence: US)
  Receive Date: 20240325
  Receipt Date: 20240325
  Transmission Date: 20240409
  Serious: Yes (Hospitalization)
  Sender: FDA-Public Use
  Company Number: US-BRISTOL-MYERS SQUIBB COMPANY-2024-047077

PATIENT
  Age: 71 Year
  Sex: Female

DRUGS (1)
  1. REVLIMID [Suspect]
     Active Substance: LENALIDOMIDE
     Indication: Plasma cell myeloma
     Dosage: FREQ : 20 MG,  TAKE ONE EVERY DAY FOR 14 DAYS AND OFF FOR 7 DAYS
     Route: 048
     Dates: start: 20240223

REACTIONS (2)
  - Swelling [Unknown]
  - Off label use [Unknown]
